FAERS Safety Report 17269940 (Version 2)
Quarter: 2020Q1

REPORT INFORMATION
  Report Type: Spontaneous
  Country: CH (occurrence: CH)
  Receive Date: 20200114
  Receipt Date: 20200116
  Transmission Date: 20200409
  Serious: Yes (Hospitalization, Other)
  Sender: FDA-Public Use
  Company Number: CH-PFIZER INC-2020010627

PATIENT
  Age: 78 Year
  Sex: Male
  Weight: 72 kg

DRUGS (9)
  1. ENTRESTO [Concomitant]
     Active Substance: SACUBITRIL\VALSARTAN
     Dosage: 100 MG 1-0-1
     Route: 048
     Dates: start: 2017
  2. MARCOUMAR [Interacting]
     Active Substance: PHENPROCOUMON
     Dosage: UNK (AFTER INR, LONG-TERM THERAPY, GOAL INR 2.5. FROM 9.12.19 TEMPORARILY PAUSED, REACTIVATED ON 17)
     Route: 048
     Dates: start: 20191217
  3. CORDARONE X [Interacting]
     Active Substance: AMIODARONE HYDROCHLORIDE
     Indication: VENTRICULAR TACHYCARDIA
     Dosage: 900 MG, 1X/DAY (200 MG 2-1-2)
     Route: 048
     Dates: start: 20191202, end: 20191208
  4. MARCOUMAR [Interacting]
     Active Substance: PHENPROCOUMON
     Dosage: UNK (AFTER INR, LONG-TERM THERAPY, GOAL INR 2.5. FROM 9.12.19 TEMPORARILY PAUSED, REACTIVATED ON 17)
     Route: 048
     Dates: start: 2007, end: 20191209
  5. TOREM [TORASEMIDE] [Concomitant]
     Active Substance: TORSEMIDE
     Indication: WEIGHT INCREASED
     Dosage: 10 MG, 1X/DAY (1-0-0, TEMPORARILY HIGHER DOSE WITH WEIGHT GAIN)
     Route: 048
     Dates: start: 2016
  6. CONCOR [Concomitant]
     Active Substance: BISOPROLOL FUMARATE
     Dosage: 10 MG, 1X/DAY (1-0-0)
     Route: 048
     Dates: start: 2012
  7. METFIN [Concomitant]
     Active Substance: METFORMIN HYDROCHLORIDE
     Dosage: 1000 MG, 1X/DAY (1/2-0-1)
     Route: 048
     Dates: start: 2016, end: 201912
  8. ALLOPUR [Concomitant]
     Active Substance: ALLOPURINOL
     Dosage: 100 MG, 1X/DAY (1-0-0 START THERAPY APPROX.WINTER / SPRING 2019)
     Route: 048
     Dates: start: 2019
  9. ATORVASTATIN PFIZER [Suspect]
     Active Substance: ATORVASTATIN
     Dosage: 20 MG, 1X/DAY (1-0-0)
     Dates: start: 2012

REACTIONS (9)
  - Liver disorder [Recovering/Resolving]
  - Obstructive airways disorder [Unknown]
  - Dyspnoea at rest [Recovered/Resolved]
  - Nausea [Recovered/Resolved]
  - Inhibitory drug interaction [Recovering/Resolving]
  - Vomiting [Recovered/Resolved]
  - Pneumonia [Unknown]
  - Asbestosis [Unknown]
  - Respiratory disorder [Unknown]

NARRATIVE: CASE EVENT DATE: 20131106
